FAERS Safety Report 6543939-3 (Version None)
Quarter: 2010Q1

REPORT INFORMATION
  Report Type: 
  Country: None (occurrence: None)
  Receive Date: 20100120
  Receipt Date: 20100118
  Transmission Date: 20100710
  Serious: Yes (Hospitalization)
  Sender: FDA-Public Use
  Company Number: US-ELI_LILLY_AND_COMPANY-US201001003353

PATIENT
  Sex: Female
  Weight: 95.692 kg

DRUGS (8)
  1. BYETTA [Suspect]
     Indication: TYPE 2 DIABETES MELLITUS
     Dosage: 10 UG, 2/D
     Route: 058
     Dates: start: 20080101, end: 20090701
  2. METFORMIN [Concomitant]
     Indication: TYPE 2 DIABETES MELLITUS
     Dosage: UNK, 2/D
  3. POTASSIUM CHLORIDE [Concomitant]
     Indication: SUPPLEMENTATION THERAPY
     Dosage: UNK, DAILY (1/D)
  4. SINGULAIR [Concomitant]
     Indication: CHRONIC OBSTRUCTIVE PULMONARY DISEASE
  5. ZESTRIL [Concomitant]
     Dosage: UNK, DAILY (1/D)
  6. NEXIUM [Concomitant]
     Dosage: UNK, DAILY (1/D)
  7. ZYRTEC [Concomitant]
     Dosage: UNK, DAILY (1/D)
  8. SYMBICORT [Concomitant]
     Indication: CHRONIC OBSTRUCTIVE PULMONARY DISEASE
     Dosage: UNK, DAILY (1/D)

REACTIONS (14)
  - BLOOD GLUCOSE INCREASED [None]
  - CONFUSIONAL STATE [None]
  - DECREASED APPETITE [None]
  - DIARRHOEA [None]
  - FAECAL INCONTINENCE [None]
  - FALL [None]
  - MOBILITY DECREASED [None]
  - NAUSEA [None]
  - PAIN [None]
  - SOMNOLENCE [None]
  - STRESS [None]
  - UPPER LIMB FRACTURE [None]
  - VISION BLURRED [None]
  - WEIGHT DECREASED [None]
